FAERS Safety Report 25761378 (Version 5)
Quarter: 2025Q4

REPORT INFORMATION
  Report Type: Spontaneous
  Country: EU (occurrence: EU)
  Receive Date: 20250904
  Receipt Date: 20251205
  Transmission Date: 20260118
  Serious: Yes (Other)
  Sender: PFIZER
  Company Number: EU-BIOVITRUM-2025-FR-010405

PATIENT
  Age: 16 Year
  Sex: Male
  Weight: 55 kg

DRUGS (18)
  1. SPIRONOLACTONE [Suspect]
     Active Substance: SPIRONOLACTONE
     Indication: Oedematous kidney
     Dosage: ONCE DAILY
     Route: 048
     Dates: start: 202505, end: 20250818
  2. SPIRONOLACTONE [Suspect]
     Active Substance: SPIRONOLACTONE
     Indication: Renal injury
  3. SPIRONOLACTONE [Suspect]
     Active Substance: SPIRONOLACTONE
     Indication: C3 glomerulopathy
  4. PEGCETACOPLAN [Suspect]
     Active Substance: PEGCETACOPLAN
     Indication: C3 glomerulopathy
     Dosage: 1080 MG, 2X/WEEK (1BOTTLE / VIAL), 2X 1WEEK (TWICE WEEKLY)
     Route: 058
     Dates: start: 20250731
  5. PREDNISONE [Concomitant]
     Active Substance: PREDNISONE
     Indication: Nephropathy
     Dosage: 5 MG, 1X/DAY
     Route: 048
     Dates: start: 202502
  6. PREDNISONE [Concomitant]
     Active Substance: PREDNISONE
     Indication: C3 glomerulopathy
  7. MYCOPHENOLATE MOFETIL [Concomitant]
     Active Substance: MYCOPHENOLATE MOFETIL
     Indication: Nephropathy
     Dosage: 500 MG, 2X/DAY
     Route: 048
     Dates: start: 202502
  8. MYCOPHENOLATE MOFETIL [Concomitant]
     Active Substance: MYCOPHENOLATE MOFETIL
     Indication: Nephropathy
     Dosage: 1000 MG (500MG MORNING AND EVENING)
     Route: 048
     Dates: start: 20250129
  9. ENALAPRIL [Concomitant]
     Active Substance: ENALAPRIL
     Indication: C3 glomerulopathy
     Dosage: 10 MG, 1X/DAY
     Route: 048
     Dates: start: 20241218
  10. SODIUM BICARBONATE [Concomitant]
     Active Substance: SODIUM BICARBONATE
     Indication: C3 glomerulopathy
     Dosage: 500 MG, 3X/DAY
     Route: 048
     Dates: start: 202507
  11. SODIUM BICARBONATE [Concomitant]
     Active Substance: SODIUM BICARBONATE
     Dosage: 1500 MG (500MG MORNING, NOON, AND EVENING)
     Route: 048
     Dates: start: 202507
  12. SOLIRIS [Concomitant]
     Active Substance: ECULIZUMAB
     Indication: C3 glomerulopathy
     Dosage: 1200 MG (15 DAYS, LAST ADMINISTRATION: 31JUL2025, WILL BE COMPLETED ON 28AUG2025, EVERY TWO WEEKS)
     Route: 042
     Dates: start: 20250326, end: 20250731
  13. CHOLECALCIFEROL [Concomitant]
     Active Substance: CHOLECALCIFEROL
     Indication: C3 glomerulopathy
     Dosage: 50000 IU, WEEKLY (1 AMPOULE EVERY MONDAYS) (ORAL SOLUTION IN AN AMPULE)
  14. ALFACALCIDOL [Concomitant]
     Active Substance: ALFACALCIDOL
     Indication: C3 glomerulopathy
     Dosage: 1 UG, DAILY
  15. ALFACALCIDOL [Concomitant]
     Active Substance: ALFACALCIDOL
     Dosage: UNK UNK, DAILY
     Route: 048
  16. CALCIUM CARBONATE [Concomitant]
     Active Substance: CALCIUM CARBONATE
     Indication: C3 glomerulopathy
     Dosage: 500 MG, 1X/DAY (500 MG 1 SACHET ONCE DAILY)
     Route: 048
  17. ORACILIN [Concomitant]
     Indication: Antibiotic prophylaxis
     Dosage: 1000000 IU, 2X/DAY (SCORED TABLET) (1CP DE 1000000UI MORNING AND EVENING)
     Dates: start: 20250731, end: 20250814
  18. FUROSEMIDE [Concomitant]
     Active Substance: FUROSEMIDE
     Indication: C3 glomerulopathy
     Dosage: 80 MG
     Route: 048

REACTIONS (7)
  - Tension headache [Recovered/Resolved]
  - Dizziness [Recovered/Resolved]
  - Alopecia [Not Recovered/Not Resolved]
  - Condition aggravated [Not Recovered/Not Resolved]
  - Gynaecomastia [Unknown]
  - Extravasation [Recovered/Resolved]
  - Headache [Recovered/Resolved]

NARRATIVE: CASE EVENT DATE: 20250731
